FAERS Safety Report 25314935 (Version 1)
Quarter: 2025Q2

REPORT INFORMATION
  Report Type: Spontaneous
  Country: US (occurrence: US)
  Receive Date: 20250514
  Receipt Date: 20250514
  Transmission Date: 20250717
  Serious: No
  Sender: SANOFI AVENTIS
  Company Number: US-SA-2025SA136192

PATIENT
  Sex: Female
  Weight: 71.82 kg

DRUGS (2)
  1. DUPIXENT [Suspect]
     Active Substance: DUPILUMAB
     Indication: Dermatitis
     Dosage: 300MG,QOW
     Route: 058
     Dates: start: 20241117
  2. DUPIXENT [Suspect]
     Active Substance: DUPILUMAB
     Indication: Neurodermatitis

REACTIONS (3)
  - Skin ulcer [Not Recovered/Not Resolved]
  - Formication [Not Recovered/Not Resolved]
  - Product use in unapproved indication [Unknown]
